FAERS Safety Report 10254343 (Version 1)
Quarter: 2014Q2

REPORT INFORMATION
  Report Type: Spontaneous
  Country: DK (occurrence: DK)
  Receive Date: 20140624
  Receipt Date: 20140624
  Transmission Date: 20141212
  Serious: Yes (Disabling)
  Sender: FDA-Public Use
  Company Number: DK-MERCK-1406DNK010694

PATIENT
  Age: 54 Year
  Sex: Female
  Weight: 60 kg

DRUGS (1)
  1. TEMODAL [Suspect]
     Indication: BREAST CANCER FEMALE
     Dosage: DOES: UNKNOWN, STRENGTH: 140 MG
     Route: 048
     Dates: start: 20131201

REACTIONS (1)
  - Hypoacusis [Not Recovered/Not Resolved]
